FAERS Safety Report 24408155 (Version 1)
Quarter: 2024Q4

REPORT INFORMATION
  Report Type: Spontaneous
  Country: JP (occurrence: None)
  Receive Date: 20241007
  Receipt Date: 20241007
  Transmission Date: 20250115
  Serious: Yes (Other)
  Sender: ALEXION PHARMACEUTICALS
  Company Number: JP-ASTRAZENECA-240104983_063610_P_1

PATIENT
  Age: 66 Year

DRUGS (92)
  1. LOKELMA [Suspect]
     Active Substance: SODIUM ZIRCONIUM CYCLOSILICATE
     Indication: Hyperkalaemia
     Dosage: NUMBER OF SEPARATE DOSAGES UNKNOWN
  2. LOKELMA [Suspect]
     Active Substance: SODIUM ZIRCONIUM CYCLOSILICATE
     Dosage: NUMBER OF SEPARATE DOSAGES UNKNOWN
  3. LOKELMA [Suspect]
     Active Substance: SODIUM ZIRCONIUM CYCLOSILICATE
     Dosage: NUMBER OF SEPARATE DOSAGES UNKNOWN
  4. LOKELMA [Suspect]
     Active Substance: SODIUM ZIRCONIUM CYCLOSILICATE
     Dosage: NUMBER OF SEPARATE DOSAGES UNKNOWN
  5. LOKELMA [Suspect]
     Active Substance: SODIUM ZIRCONIUM CYCLOSILICATE
     Dosage: NUMBER OF SEPARATE DOSAGES UNKNOWN
  6. LOKELMA [Suspect]
     Active Substance: SODIUM ZIRCONIUM CYCLOSILICATE
     Dosage: NUMBER OF SEPARATE DOSAGES UNKNOWN
  7. LOKELMA [Suspect]
     Active Substance: SODIUM ZIRCONIUM CYCLOSILICATE
     Dosage: NUMBER OF SEPARATE DOSAGES UNKNOWN
  8. LOKELMA [Suspect]
     Active Substance: SODIUM ZIRCONIUM CYCLOSILICATE
     Dosage: NUMBER OF SEPARATE DOSAGES UNKNOWN
  9. AZILSARTAN KAMEDOXOMIL [Concomitant]
     Active Substance: AZILSARTAN KAMEDOXOMIL
     Dosage: DOSE UNKNOWN
  10. AZILSARTAN KAMEDOXOMIL [Concomitant]
     Active Substance: AZILSARTAN KAMEDOXOMIL
     Dosage: DOSE UNKNOWN
  11. AZILSARTAN KAMEDOXOMIL [Concomitant]
     Active Substance: AZILSARTAN KAMEDOXOMIL
     Dosage: DOSE UNKNOWN
  12. AZILSARTAN KAMEDOXOMIL [Concomitant]
     Active Substance: AZILSARTAN KAMEDOXOMIL
     Dosage: DOSE UNKNOWN
  13. AMLODIPINE [Concomitant]
     Active Substance: AMLODIPINE BESYLATE
     Dosage: DOSE UNKNOWN
  14. AMLODIPINE [Concomitant]
     Active Substance: AMLODIPINE BESYLATE
     Dosage: DOSE UNKNOWN
  15. AMLODIPINE [Concomitant]
     Active Substance: AMLODIPINE BESYLATE
     Dosage: DOSE UNKNOWN
  16. AMLODIPINE [Concomitant]
     Active Substance: AMLODIPINE BESYLATE
     Dosage: DOSE UNKNOWN
  17. ESAXERENONE [Concomitant]
     Active Substance: ESAXERENONE
     Dosage: DOSE UNKNOWN
  18. ESAXERENONE [Concomitant]
     Active Substance: ESAXERENONE
     Dosage: DOSE UNKNOWN
  19. ESAXERENONE [Concomitant]
     Active Substance: ESAXERENONE
     Dosage: DOSE UNKNOWN
  20. ESAXERENONE [Concomitant]
     Active Substance: ESAXERENONE
     Dosage: DOSE UNKNOWN
  21. ROSUVASTATIN [Concomitant]
     Active Substance: ROSUVASTATIN
     Dosage: DOSE UNKNOWN
  22. ROSUVASTATIN [Concomitant]
     Active Substance: ROSUVASTATIN
     Dosage: DOSE UNKNOWN
  23. ROSUVASTATIN [Concomitant]
     Active Substance: ROSUVASTATIN
     Dosage: DOSE UNKNOWN
  24. ROSUVASTATIN [Concomitant]
     Active Substance: ROSUVASTATIN
     Dosage: DOSE UNKNOWN
  25. URSODIOL [Concomitant]
     Active Substance: URSODIOL
     Dosage: DOSE UNKNOWN
  26. URSODIOL [Concomitant]
     Active Substance: URSODIOL
     Dosage: DOSE UNKNOWN
  27. URSODIOL [Concomitant]
     Active Substance: URSODIOL
     Dosage: DOSE UNKNOWN
  28. URSODIOL [Concomitant]
     Active Substance: URSODIOL
     Dosage: DOSE UNKNOWN
  29. OLOPATADINE [Concomitant]
     Active Substance: OLOPATADINE
     Dosage: DOSE UNKNOWN
  30. OLOPATADINE [Concomitant]
     Active Substance: OLOPATADINE
     Dosage: DOSE UNKNOWN
  31. OLOPATADINE [Concomitant]
     Active Substance: OLOPATADINE
     Dosage: DOSE UNKNOWN
  32. OLOPATADINE [Concomitant]
     Active Substance: OLOPATADINE
     Dosage: DOSE UNKNOWN
  33. SHAKUYAKUKANZOTO [Concomitant]
     Active Substance: HERBALS
     Dosage: DOSE UNKNOWN
  34. SHAKUYAKUKANZOTO [Concomitant]
     Active Substance: HERBALS
     Dosage: DOSE UNKNOWN
  35. SHAKUYAKUKANZOTO [Concomitant]
     Active Substance: HERBALS
     Dosage: DOSE UNKNOWN
  36. SHAKUYAKUKANZOTO [Concomitant]
     Active Substance: HERBALS
     Dosage: DOSE UNKNOWN
  37. HERBALS [Concomitant]
     Active Substance: HERBALS
     Dosage: DOSE UNKNOWN
  38. HERBALS [Concomitant]
     Active Substance: HERBALS
     Dosage: DOSE UNKNOWN
  39. HERBALS [Concomitant]
     Active Substance: HERBALS
     Dosage: DOSE UNKNOWN
  40. HERBALS [Concomitant]
     Active Substance: HERBALS
     Dosage: DOSE UNKNOWN
  41. LOXOPROFEN [Concomitant]
     Active Substance: LOXOPROFEN
     Dosage: DOSE UNKNOWN
  42. LOXOPROFEN [Concomitant]
     Active Substance: LOXOPROFEN
     Dosage: DOSE UNKNOWN
  43. LOXOPROFEN [Concomitant]
     Active Substance: LOXOPROFEN
     Dosage: DOSE UNKNOWN
  44. LOXOPROFEN [Concomitant]
     Active Substance: LOXOPROFEN
     Dosage: DOSE UNKNOWN
  45. REBAMIPIDE [Concomitant]
     Active Substance: REBAMIPIDE
     Dosage: DOSE UNKNOWN
  46. REBAMIPIDE [Concomitant]
     Active Substance: REBAMIPIDE
     Dosage: DOSE UNKNOWN
  47. REBAMIPIDE [Concomitant]
     Active Substance: REBAMIPIDE
     Dosage: DOSE UNKNOWN
  48. REBAMIPIDE [Concomitant]
     Active Substance: REBAMIPIDE
     Dosage: DOSE UNKNOWN
  49. LIMAPROST [Concomitant]
     Active Substance: LIMAPROST
     Dosage: DOSE UNKNOWN
  50. LIMAPROST [Concomitant]
     Active Substance: LIMAPROST
     Dosage: DOSE UNKNOWN
  51. LIMAPROST [Concomitant]
     Active Substance: LIMAPROST
     Dosage: DOSE UNKNOWN
  52. LIMAPROST [Concomitant]
     Active Substance: LIMAPROST
     Dosage: DOSE UNKNOWN
  53. METHYLCOBALAMIN [Concomitant]
     Active Substance: METHYLCOBALAMIN
     Dosage: DOSE UNKNOWN
  54. METHYLCOBALAMIN [Concomitant]
     Active Substance: METHYLCOBALAMIN
     Dosage: DOSE UNKNOWN
  55. METHYLCOBALAMIN [Concomitant]
     Active Substance: METHYLCOBALAMIN
     Dosage: DOSE UNKNOWN
  56. METHYLCOBALAMIN [Concomitant]
     Active Substance: METHYLCOBALAMIN
     Dosage: DOSE UNKNOWN
  57. TOCOPHERYL NICOTINATE, D-.ALPHA. [Concomitant]
     Active Substance: TOCOPHERYL NICOTINATE, D-.ALPHA.
     Dosage: DOSE UNKNOWN
  58. TOCOPHERYL NICOTINATE, D-.ALPHA. [Concomitant]
     Active Substance: TOCOPHERYL NICOTINATE, D-.ALPHA.
     Dosage: DOSE UNKNOWN
  59. TOCOPHERYL NICOTINATE, D-.ALPHA. [Concomitant]
     Active Substance: TOCOPHERYL NICOTINATE, D-.ALPHA.
     Dosage: DOSE UNKNOWN
  60. TOCOPHERYL NICOTINATE, D-.ALPHA. [Concomitant]
     Active Substance: TOCOPHERYL NICOTINATE, D-.ALPHA.
     Dosage: DOSE UNKNOWN
  61. PREGABALIN [Concomitant]
     Active Substance: PREGABALIN
     Dosage: DOSE UNKNOWN
  62. PREGABALIN [Concomitant]
     Active Substance: PREGABALIN
     Dosage: DOSE UNKNOWN
  63. PREGABALIN [Concomitant]
     Active Substance: PREGABALIN
     Dosage: DOSE UNKNOWN
  64. PREGABALIN [Concomitant]
     Active Substance: PREGABALIN
     Dosage: DOSE UNKNOWN
  65. KETOPROFEN [Concomitant]
     Active Substance: KETOPROFEN
     Dosage: DOSE UNKNOWN
  66. KETOPROFEN [Concomitant]
     Active Substance: KETOPROFEN
     Dosage: DOSE UNKNOWN
  67. KETOPROFEN [Concomitant]
     Active Substance: KETOPROFEN
     Dosage: DOSE UNKNOWN
  68. KETOPROFEN [Concomitant]
     Active Substance: KETOPROFEN
     Dosage: DOSE UNKNOWN
  69. FUROSEMIDE [Concomitant]
     Active Substance: FUROSEMIDE
     Dosage: DOSE UNKNOWN
  70. FUROSEMIDE [Concomitant]
     Active Substance: FUROSEMIDE
     Dosage: DOSE UNKNOWN
     Route: 065
  71. FUROSEMIDE [Concomitant]
     Active Substance: FUROSEMIDE
     Dosage: DOSE UNKNOWN
  72. FUROSEMIDE [Concomitant]
     Active Substance: FUROSEMIDE
     Dosage: DOSE UNKNOWN
     Route: 065
  73. FUROSEMIDE [Concomitant]
     Active Substance: FUROSEMIDE
     Dosage: DOSE UNKNOWN
  74. FUROSEMIDE [Concomitant]
     Active Substance: FUROSEMIDE
     Dosage: DOSE UNKNOWN
     Route: 065
  75. FUROSEMIDE [Concomitant]
     Active Substance: FUROSEMIDE
     Dosage: DOSE UNKNOWN
  76. FUROSEMIDE [Concomitant]
     Active Substance: FUROSEMIDE
     Dosage: DOSE UNKNOWN
     Route: 065
  77. DEXTROSE [Concomitant]
     Active Substance: DEXTROSE MONOHYDRATE
     Dosage: DOSE UNKNOWN
  78. DEXTROSE [Concomitant]
     Active Substance: DEXTROSE MONOHYDRATE
     Dosage: DOSE UNKNOWN
     Route: 065
  79. DEXTROSE [Concomitant]
     Active Substance: DEXTROSE MONOHYDRATE
     Dosage: DOSE UNKNOWN
  80. DEXTROSE [Concomitant]
     Active Substance: DEXTROSE MONOHYDRATE
     Dosage: DOSE UNKNOWN
     Route: 065
  81. DEXTROSE [Concomitant]
     Active Substance: DEXTROSE MONOHYDRATE
     Dosage: DOSE UNKNOWN
  82. DEXTROSE [Concomitant]
     Active Substance: DEXTROSE MONOHYDRATE
     Dosage: DOSE UNKNOWN
     Route: 065
  83. DEXTROSE [Concomitant]
     Active Substance: DEXTROSE MONOHYDRATE
     Dosage: DOSE UNKNOWN
  84. DEXTROSE [Concomitant]
     Active Substance: DEXTROSE MONOHYDRATE
     Dosage: DOSE UNKNOWN
     Route: 065
  85. INSULIN NOS [Concomitant]
     Active Substance: INSULIN NOS
     Dosage: DOSE UNKNOWN
  86. INSULIN NOS [Concomitant]
     Active Substance: INSULIN NOS
     Dosage: DOSE UNKNOWN
     Route: 065
  87. INSULIN NOS [Concomitant]
     Active Substance: INSULIN NOS
     Dosage: DOSE UNKNOWN
  88. INSULIN NOS [Concomitant]
     Active Substance: INSULIN NOS
     Dosage: DOSE UNKNOWN
     Route: 065
  89. INSULIN NOS [Concomitant]
     Active Substance: INSULIN NOS
     Dosage: DOSE UNKNOWN
  90. INSULIN NOS [Concomitant]
     Active Substance: INSULIN NOS
     Dosage: DOSE UNKNOWN
     Route: 065
  91. INSULIN NOS [Concomitant]
     Active Substance: INSULIN NOS
     Dosage: DOSE UNKNOWN
  92. INSULIN NOS [Concomitant]
     Active Substance: INSULIN NOS
     Dosage: DOSE UNKNOWN
     Route: 065

REACTIONS (1)
  - Hyperkalaemia [Recovered/Resolved]
